FAERS Safety Report 14820483 (Version 2)
Quarter: 2018Q2

REPORT INFORMATION
  Report Type: Spontaneous
  Country: US (occurrence: US)
  Receive Date: 20180427
  Receipt Date: 20180607
  Transmission Date: 20180711
  Serious: Yes (Other)
  Sender: FDA-Public Use
  Company Number: US-AMGEN-USASP2018056262

PATIENT
  Age: 73 Year
  Sex: Female
  Weight: 98.59 kg

DRUGS (19)
  1. LAMICTAL [Concomitant]
     Active Substance: LAMOTRIGINE
  2. XGEVA [Suspect]
     Active Substance: DENOSUMAB
     Indication: METASTASES TO BONE
     Dosage: 120 MG, Q4WK
     Route: 058
     Dates: start: 20160614, end: 20170724
  3. IBRANCE [Concomitant]
     Active Substance: PALBOCICLIB
  4. CEFADROXIL. [Concomitant]
     Active Substance: CEFADROXIL
  5. EXEMESTANE. [Concomitant]
     Active Substance: EXEMESTANE
  6. ESCITALOPRAM [Concomitant]
     Active Substance: ESCITALOPRAM OXALATE
  7. LITHIUM. [Concomitant]
     Active Substance: LITHIUM
  8. XGEVA [Suspect]
     Active Substance: DENOSUMAB
     Indication: BREAST CANCER
     Dosage: 120 MG, Q3MO
     Route: 058
     Dates: start: 20170724, end: 20171113
  9. LEVOTHYROXINE. [Concomitant]
     Active Substance: LEVOTHYROXINE
  10. MORPHINE SULFATE. [Concomitant]
     Active Substance: MORPHINE SULFATE
  11. ASPIRIN. [Concomitant]
     Active Substance: ASPIRIN
  12. HYDROCODONE/ACETAMINOPHEN [Concomitant]
     Active Substance: ACETAMINOPHEN\HYDROCODONE
  13. VITAMINS [Concomitant]
     Active Substance: VITAMINS
  14. VITAMIN C [Concomitant]
     Active Substance: ASCORBIC ACID
  15. MUCINEX [Concomitant]
     Active Substance: GUAIFENESIN
  16. ALPRAZOLAM. [Concomitant]
     Active Substance: ALPRAZOLAM
  17. ELIQUIS [Concomitant]
     Active Substance: APIXABAN
  18. POTASSIUM ACETATE. [Concomitant]
     Active Substance: POTASSIUM ACETATE
  19. CALTRATE 600+D [Concomitant]

REACTIONS (1)
  - Osteonecrosis of jaw [Recovered/Resolved]

NARRATIVE: CASE EVENT DATE: 20180305
